FAERS Safety Report 5953117-4 (Version None)
Quarter: 2008Q4

REPORT INFORMATION
  Report Type: 
  Country: None (occurrence: None)
  Receive Date: 20081114
  Receipt Date: 20081105
  Transmission Date: 20090506
  Serious: Yes (Other)
  Sender: FDA-Public Use
  Company Number: IE-AMGEN-US312537

PATIENT
  Sex: Male

DRUGS (2)
  1. ENBREL [Suspect]
     Indication: POLYARTHRITIS
     Dosage: UNKNOWN
  2. DELTACORTRIL [Concomitant]
     Dosage: UNKNOWN

REACTIONS (2)
  - CELLULITIS [None]
  - NECROTISING FASCIITIS [None]
